FAERS Safety Report 9592259 (Version 1)
Quarter: 2013Q4

REPORT INFORMATION
  Report Type: Spontaneous
  Country: FR (occurrence: FR)
  Receive Date: 20131004
  Receipt Date: 20131004
  Transmission Date: 20140711
  Serious: Yes (Death)
  Sender: FDA-Public Use
  Company Number: FR-BRISTOL-MYERS SQUIBB COMPANY-19425032

PATIENT
  Age: 85 Year
  Sex: Female

DRUGS (12)
  1. COUMADIN TABS 2 MG [Suspect]
     Dosage: 1 DF: 1/2 TAB
     Route: 048
  2. PRAVASTATIN SODIUM [Suspect]
  3. PARACETAMOL [Suspect]
     Dosage: PARACETAMOL PANPHARMA,STRENGTH: 10 MG/ML,SOLN FOR INF
     Route: 042
  4. PLAVIX TABS [Suspect]
  5. FUROSEMIDE [Suspect]
     Dosage: TABS,FUROSEMIDE BIOGARAN
  6. DANATROL [Suspect]
     Dosage: HARD CAPS
  7. AMIODARONE [Suspect]
     Dosage: EG 200MG TAB,1 DF: 1/2 TAB
  8. JANUVIA [Suspect]
     Dosage: TAB
  9. GLICLAZIDE [Suspect]
     Dosage: GLICLAZIDE ARROW
  10. METFORMINE [Suspect]
     Dosage: METFORMINE ARROW TABS
  11. CACIT D3 [Suspect]
  12. NEFOPAM HCL [Suspect]
     Dosage: NEFOPAM MYLAN,1 DF: 20 MG/2ML,SOLN FOR INJ
     Route: 042
     Dates: start: 20130825, end: 20130826

REACTIONS (1)
  - Hepatitis fulminant [Fatal]
